FAERS Safety Report 4513093-8 (Version None)
Quarter: 2004Q4

REPORT INFORMATION
  Report Type: 
  Country: None (occurrence: None)
  Receive Date: 20040928
  Receipt Date: 20040624
  Transmission Date: 20050328
  Serious: No
  Sender: FDA-Public Use
  Company Number: 04P-163-0264883-00

PATIENT
  Age: 50 Year
  Sex: Male
  Weight: 83.9154 kg

DRUGS (7)
  1. HUMIRA [Suspect]
     Indication: RHEUMATOID ARTHRITIS
     Dosage: 40 MG, 1 IN 2 WK, SUBCUTANEOUS
     Route: 058
     Dates: start: 20040101
  2. PENICILLIN [Concomitant]
  3. PREDNISONE [Concomitant]
  4. OXYCOCET [Concomitant]
  5. ACETYLSALICYLIC ACID [Concomitant]
  6. FOLIC ACID [Concomitant]
  7. INSULIN [Concomitant]

REACTIONS (7)
  - DYSKINESIA [None]
  - INJECTION SITE NODULE [None]
  - INJECTION SITE PRURITUS [None]
  - MUSCULOSKELETAL STIFFNESS [None]
  - PAIN IN EXTREMITY [None]
  - TOOTH INFECTION [None]
  - WEIGHT INCREASED [None]
